FAERS Safety Report 9994838 (Version 1)
Quarter: 2014Q1

REPORT INFORMATION
  Report Type: Spontaneous
  Country: US (occurrence: None)
  Receive Date: 20140219
  Receipt Date: 20140219
  Transmission Date: 20141002
  Serious: Yes (Other)
  Sender: FDA-Public Use
  Company Number: 1000052599

PATIENT
  Age: 58 Year
  Sex: Male

DRUGS (1)
  1. FETZIMA [Suspect]
     Indication: DEPRESSION
     Dosage: 20MG (20MG, 1 IN 1D), ORAL
     Route: 048
     Dates: start: 20131226, end: 20131227

REACTIONS (1)
  - Urinary retention [None]
